FAERS Safety Report 14950214 (Version 1)
Quarter: 2018Q2

REPORT INFORMATION
  Report Type: Spontaneous
  Country: PL (occurrence: PL)
  Receive Date: 20180530
  Receipt Date: 20180530
  Transmission Date: 20180711
  Serious: Yes (Death, Other)
  Sender: FDA-Public Use
  Company Number: PL-ACCORD-067466

PATIENT
  Age: 65 Year
  Sex: Male

DRUGS (2)
  1. BENDAMUSTINE/BENDAMUSTINE HYDROCHLORIDE [Suspect]
     Active Substance: BENDAMUSTINE HYDROCHLORIDE
     Indication: PLASMA CELL MYELOMA
     Route: 041
     Dates: start: 20170228
  2. POMALIDOMIDE [Suspect]
     Active Substance: POMALIDOMIDE
     Indication: PLASMA CELL MYELOMA
     Dosage: ALSO RECEIVED ON 10-MAR-2017
     Route: 048
     Dates: start: 20170220, end: 20170303

REACTIONS (10)
  - Death [Fatal]
  - Confusional state [Recovered/Resolved]
  - Anal incontinence [Recovered/Resolved]
  - Nervous system disorder [Unknown]
  - Activated partial thromboplastin time prolonged [None]
  - Thrombocytopenia [Recovering/Resolving]
  - Activated partial thromboplastin time ratio decreased [None]
  - Prothrombin time prolonged [None]
  - White blood cell count decreased [None]
  - Urinary incontinence [Recovered/Resolved]

NARRATIVE: CASE EVENT DATE: 2017
